FAERS Safety Report 10308689 (Version 4)
Quarter: 2014Q3

REPORT INFORMATION
  Report Type: Spontaneous
  Country: JP (occurrence: JP)
  Receive Date: 20140716
  Receipt Date: 20140813
  Transmission Date: 20150326
  Serious: Yes (Disabling, Other)
  Sender: FDA-Public Use
  Company Number: JP-BRISTOL-MYERS SQUIBB COMPANY-21204359

PATIENT
  Age: 58 Year
  Sex: Female

DRUGS (4)
  1. TOCOPHERYL NICOTINATE, D-.ALPHA.. [Concomitant]
     Active Substance: TOCOPHERYL NICOTINATE, D-.ALPHA.
     Dates: start: 20100721
  2. ANAFRANIL [Suspect]
     Active Substance: CLOMIPRAMINE HYDROCHLORIDE
     Indication: DEPRESSIVE SYMPTOM
     Dosage: 11NOV10-20MAY13:50MG?21MAY13-25DEC13:75MG?26DEC13-15JAN14:100MG?16JAN14-ONG:75MG
     Route: 048
     Dates: start: 20100721
  3. ABILIFY [Suspect]
     Active Substance: ARIPIPRAZOLE
     Indication: DEPRESSION
     Dosage: 6MG-17JAN13TO20MAY13?3MG-21MAY13TO1FEB14?3MG-21FEB14 ONG
     Route: 048
  4. MENDON [Concomitant]
     Dates: start: 20100721

REACTIONS (6)
  - Haemorrhage intracranial [Not Recovered/Not Resolved]
  - Contusion [Unknown]
  - Enophthalmos [Not Recovered/Not Resolved]
  - Syncope [Recovered/Resolved]
  - Retrograde amnesia [Unknown]
  - Diplopia [Not Recovered/Not Resolved]

NARRATIVE: CASE EVENT DATE: 20140201
